FAERS Safety Report 8823046 (Version 1)
Quarter: 2012Q4

REPORT INFORMATION
  Report Type: 
  Country: US (occurrence: US)
  Receive Date: 20121003
  Receipt Date: 20121003
  Transmission Date: 20130627
  Serious: No
  Sender: FDA-Public Use
  Company Number: US-009507513-1209USA009216

PATIENT
  Sex: Male

DRUGS (1)
  1. INVANZ [Suspect]
     Indication: INFECTION
     Dosage: 2 g, UNK
     Route: 042

REACTIONS (2)
  - Overdose [Unknown]
  - No adverse event [Unknown]
